FAERS Safety Report 4302611-0 (Version None)
Quarter: 2004Q1

REPORT INFORMATION
  Report Type: 
  Country: None (occurrence: None)
  Receive Date: 20040220
  Receipt Date: 20040210
  Transmission Date: 20041129
  Serious: Yes (Death, Hospitalization)
  Sender: FDA-Public Use
  Company Number: 04P-163-0249792-00

PATIENT
  Age: 81 Year
  Sex: Female
  Weight: 70.3075 kg

DRUGS (9)
  1. HUMIRA [Suspect]
     Indication: RHEUMATOID ARTHRITIS
     Dosage: 40 MCG, 1 IN 2 WK, SUBCUTANEOUS
     Route: 058
     Dates: start: 20030320
  2. PREDNISONE [Concomitant]
  3. ACETYLSALICYLIC ACID [Concomitant]
  4. ISOSORBIDE MONONITRATE [Concomitant]
  5. ATENOLOL [Concomitant]
  6. FUROSEMIDE [Concomitant]
  7. POTASSIUM [Concomitant]
  8. RISEDRONATE SODIUM [Concomitant]
  9. PAROXETINE HCL [Concomitant]

REACTIONS (1)
  - MYOCARDIAL INFARCTION [None]
